FAERS Safety Report 6864221-0 (Version None)
Quarter: 2010Q3

REPORT INFORMATION
  Report Type: 
  Country: None (occurrence: None)
  Receive Date: 20100720
  Receipt Date: 20100705
  Transmission Date: 20110219
  Serious: Yes (Hospitalization)
  Sender: FDA-Public Use
  Company Number: 2010-00608

PATIENT
  Age: 70 Year
  Sex: Female
  Weight: 83.9154 kg

DRUGS (1)
  1. LISINOPRIL AND HYDROCHLOROTHIAZIDE TABLETS 10MG/12.5 MG (LISINOPRIL US [Suspect]
     Indication: HYPERTENSION
     Dosage: 10MG/12.5 MG (1 IN 1 D), PER ORAL
     Route: 048
     Dates: start: 20100608, end: 20100608

REACTIONS (11)
  - ANGIOPATHY [None]
  - CHEST PAIN [None]
  - DIARRHOEA [None]
  - FEELING ABNORMAL [None]
  - FEELING HOT [None]
  - HEADACHE [None]
  - NAUSEA [None]
  - NECK PAIN [None]
  - PAIN [None]
  - PAIN IN JAW [None]
  - RESTLESSNESS [None]
